FAERS Safety Report 15913267 (Version 3)
Quarter: 2019Q2

REPORT INFORMATION
  Report Type: Spontaneous
  Country: US (occurrence: US)
  Receive Date: 20190204
  Receipt Date: 20190515
  Transmission Date: 20190711
  Serious: Yes (Hospitalization, Other)
  Sender: FDA-Public Use
  Company Number: US-PFIZER INC-2019037700

PATIENT
  Age: 65 Year
  Sex: Female
  Weight: 52.15 kg

DRUGS (2)
  1. CELONTIN [Suspect]
     Active Substance: METHSUXIMIDE
     Indication: SEIZURE
     Dosage: 300 MG, DAILY
     Route: 048
  2. MYSOLINE [Concomitant]
     Active Substance: PRIMIDONE
     Dosage: 250 MG, 3X/DAY

REACTIONS (3)
  - Endocarditis [Recovered/Resolved]
  - Weight decreased [Unknown]
  - Pyrexia [Unknown]

NARRATIVE: CASE EVENT DATE: 2012
